FAERS Safety Report 5634034-6 (Version None)
Quarter: 2008Q1

REPORT INFORMATION
  Report Type: 
  Country: None (occurrence: None)
  Receive Date: 20080131
  Receipt Date: 20071116
  Transmission Date: 20080703
  Serious: No
  Sender: FDA-Public Use
  Company Number: PHEH2007US14934

PATIENT
  Age: 44 Year
  Sex: Male

DRUGS (2)
  1. TEKTURNA [Suspect]
     Indication: HYPERTENSION
     Dosage: 150 MG, QD
  2. NEXIUM [Suspect]

REACTIONS (2)
  - BURNING SENSATION [None]
  - CHEST DISCOMFORT [None]
